FAERS Safety Report 10769010 (Version 2)
Quarter: 2015Q1

REPORT INFORMATION
  Report Type: Spontaneous
  Country: JP (occurrence: JP)
  Receive Date: 20150206
  Receipt Date: 20150216
  Transmission Date: 20150721
  Serious: Yes (Hospitalization)
  Sender: FDA-Public Use
  Company Number: JP-ROCHE-1531500

PATIENT
  Age: 67 Year
  Sex: Male
  Weight: 58 kg

DRUGS (6)
  1. LOXONIN [Suspect]
     Active Substance: LOXOPROFEN SODIUM
     Indication: PROPHYLAXIS
     Route: 048
     Dates: start: 20141016
  2. PEGASYS [Suspect]
     Active Substance: PEGINTERFERON ALFA-2A
     Indication: CHRONIC HEPATITIS C
     Route: 058
     Dates: start: 20141016
  3. COPEGUS [Suspect]
     Active Substance: RIBAVIRIN
     Indication: CHRONIC HEPATITIS C
     Route: 048
     Dates: start: 20141016
  4. PEGASYS [Suspect]
     Active Substance: PEGINTERFERON ALFA-2A
     Route: 058
     Dates: start: 20141030
  5. SELBEX [Concomitant]
     Active Substance: TEPRENONE
     Route: 048
     Dates: start: 20141016
  6. SOVRIAD [Suspect]
     Active Substance: SIMEPREVIR
     Indication: CHRONIC HEPATITIS C
     Route: 048
     Dates: start: 20141016

REACTIONS (5)
  - Diarrhoea [Unknown]
  - Mallory-Weiss syndrome [Recovered/Resolved]
  - Weight decreased [Unknown]
  - Gastric ulcer [Recovered/Resolved]
  - Duodenal ulcer [Unknown]

NARRATIVE: CASE EVENT DATE: 20141019
